FAERS Safety Report 8159559-3 (Version None)
Quarter: 2012Q1

REPORT INFORMATION
  Report Type: 
  Country: None (occurrence: None)
  Receive Date: 20120223
  Receipt Date: 20120220
  Transmission Date: 20120608
  Serious: Yes (Other)
  Sender: FDA-Public Use
  Company Number: DE-ROCHE-1039383

PATIENT
  Sex: Female
  Weight: 72 kg

DRUGS (6)
  1. VITAMIN D [Concomitant]
     Indication: PROPHYLAXIS
  2. CALCIUM [Concomitant]
     Indication: PROPHYLAXIS
  3. DICLOFENAC SODIUM [Concomitant]
     Indication: SPINAL DISORDER
  4. MYCOPHENOLATE MOFETIL (CELLCEPT) [Suspect]
     Indication: POLYMYOSITIS
     Route: 048
     Dates: start: 20080101
  5. PANTOPRAZOLE [Concomitant]
     Indication: PROPHYLAXIS AGAINST GASTROINTESTINAL ULCER
  6. RAMIPRIL [Concomitant]
     Indication: HYPERTENSION

REACTIONS (1)
  - MENTAL DISORDER [None]
